FAERS Safety Report 20835118 (Version 1)
Quarter: 2022Q2

REPORT INFORMATION
  Report Type: Spontaneous
  Country: US (occurrence: None)
  Receive Date: 20220516
  Receipt Date: 20220516
  Transmission Date: 20220721
  Serious: Yes (Hospitalization)
  Sender: FDA-Public Use
  Company Number: None

PATIENT
  Age: 51 Year
  Sex: Female
  Weight: 59.9 kg

DRUGS (1)
  1. BACITRACIN\POLYMYXIN B SULFATE [Suspect]
     Active Substance: BACITRACIN\POLYMYXIN B SULFATE
     Indication: Eye operation
     Dosage: OTHER FREQUENCY : ONCE TO BOTH EYES;?
     Route: 047
     Dates: start: 20220427, end: 20220427

REACTIONS (3)
  - Eye pain [None]
  - Visual impairment [None]
  - Adverse drug reaction [None]

NARRATIVE: CASE EVENT DATE: 20220427
